FAERS Safety Report 14056693 (Version 1)
Quarter: 2017Q4

REPORT INFORMATION
  Report Type: Spontaneous
  Country: FR (occurrence: FR)
  Receive Date: 20171006
  Receipt Date: 20171006
  Transmission Date: 20180321
  Serious: Yes (Life-Threatening, Other)
  Sender: FDA-Public Use
  Company Number: FR-GALDERMA-FR17008616

PATIENT
  Age: 8 Decade
  Sex: Male

DRUGS (2)
  1. METHOTREXATE. [Suspect]
     Active Substance: METHOTREXATE
     Indication: PEMPHIGOID
     Dosage: LOW-DOSE
     Route: 048
  2. CLOBETASOL [Suspect]
     Active Substance: CLOBETASOL
     Indication: PEMPHIGOID
     Route: 061

REACTIONS (4)
  - Human herpesvirus 8 infection [Unknown]
  - Drug ineffective for unapproved indication [Unknown]
  - Kaposi^s sarcoma [Recovering/Resolving]
  - Intentional product use issue [Recovered/Resolved]
